FAERS Safety Report 4745790-3 (Version None)
Quarter: 2005Q3

REPORT INFORMATION
  Report Type: 
  Country: None (occurrence: None)
  Receive Date: 20050815
  Receipt Date: 20050815
  Transmission Date: 20060218
  Serious: Yes (Hospitalization)
  Sender: FDA-Public Use
  Company Number: None

PATIENT
  Sex: Male
  Weight: 70.7611 kg

DRUGS (4)
  1. OXALIPLATIN  SANOFI [Suspect]
     Indication: COLON CANCER METASTATIC
     Dosage: 180 MG   D1 Q 21 DAYS  INTRAVENOU
     Route: 042
     Dates: start: 20050503, end: 20050614
  2. PROSCAR [Concomitant]
  3. CENTRUM MVI [Concomitant]
  4. POTASSIUM CHLORIDE [Concomitant]

REACTIONS (5)
  - ABDOMINAL PAIN [None]
  - COLONIC PSEUDO-OBSTRUCTION [None]
  - DIARRHOEA [None]
  - FLATULENCE [None]
  - PYREXIA [None]
